FAERS Safety Report 5272429-3 (Version None)
Quarter: 2007Q1

REPORT INFORMATION
  Report Type: 
  Country: None (occurrence: None)
  Receive Date: 20070320
  Receipt Date: 20070320
  Transmission Date: 20070707
  Serious: Yes (Other)
  Sender: FDA-Public Use
  Company Number: None

PATIENT
  Age: 56 Year
  Sex: Male
  Weight: 82.5547 kg

DRUGS (1)
  1. VYTORIN [Suspect]
     Indication: HYPERLIPIDAEMIA
     Dosage: 10/40 OR  ONE TABLET DAILY PO
     Route: 048
     Dates: start: 20070216, end: 20070301

REACTIONS (4)
  - ALANINE AMINOTRANSFERASE INCREASED [None]
  - ASPARTATE AMINOTRANSFERASE INCREASED [None]
  - ASTHENIA [None]
  - MYALGIA [None]
